FAERS Safety Report 5333269-X (Version None)
Quarter: 2007Q2

REPORT INFORMATION
  Report Type: 
  Country: None (occurrence: None)
  Receive Date: 20070524
  Receipt Date: 20070516
  Transmission Date: 20071010
  Serious: Yes (Death, Other)
  Sender: FDA-Public Use
  Company Number: MX-ELI_LILLY_AND_COMPANY-MX200702004186

PATIENT
  Age: 46 Year
  Sex: Male

DRUGS (5)
  1. DEXAMETHASONE 0.5MG TAB [Concomitant]
  2. PEMETREXED [Suspect]
     Indication: PLEURAL MESOTHELIOMA MALIGNANT
     Dosage: EVERY 3 WEEKS
     Route: 042
  3. FOLIC ACID [Concomitant]
     Indication: PROPHYLAXIS
  4. VITAMIN B-12 [Concomitant]
     Indication: PROPHYLAXIS
  5. CISPLATIN [Concomitant]

REACTIONS (3)
  - PANCYTOPENIA [None]
  - RENAL FAILURE ACUTE [None]
  - SKIN HYPERPIGMENTATION [None]
